FAERS Safety Report 8827302 (Version 2)
Quarter: 2013Q3

REPORT INFORMATION
  Report Type: Spontaneous
  Country: US (occurrence: US)
  Receive Date: 20121005
  Receipt Date: 20130906
  Transmission Date: 20140515
  Serious: No
  Sender: FDA-Public Use
  Company Number: US-ASTRAZENECA-2012SE74641

PATIENT
  Age: 47 Year
  Sex: Female

DRUGS (6)
  1. SYMBICORT PMDI [Suspect]
     Indication: CHRONIC OBSTRUCTIVE PULMONARY DISEASE
     Dosage: 160/4.5 MCG DAILY
     Route: 055
  2. SYMBICORT PMDI [Suspect]
     Indication: CHRONIC OBSTRUCTIVE PULMONARY DISEASE
     Dosage: 160/4.5 MCG 1 PUFF  BID
     Route: 055
     Dates: start: 2012, end: 2013
  3. SYMBICORT PMDI [Suspect]
     Indication: CHRONIC OBSTRUCTIVE PULMONARY DISEASE
     Route: 055
  4. VENTOLIN INHALER [Concomitant]
  5. THYROID MEDICATION [Concomitant]
  6. NEBULIZER [Concomitant]

REACTIONS (3)
  - Malaise [Unknown]
  - Drug dose omission [Unknown]
  - Intentional drug misuse [Unknown]
